FAERS Safety Report 5157853-1 (Version None)
Quarter: 2006Q4

REPORT INFORMATION
  Report Type: 
  Country: None (occurrence: None)
  Receive Date: 20061127
  Receipt Date: 20061009
  Transmission Date: 20070319
  Serious: Yes (Other)
  Sender: FDA-Public Use
  Company Number: US-ELI_LILLY_AND_COMPANY-US200610001619

PATIENT
  Age: 42 Year
  Sex: Female

DRUGS (5)
  1. CYMBALTA [Suspect]
     Indication: COMPLEX REGIONAL PAIN SYNDROME
     Dosage: 60 MG, UNK
     Dates: start: 20051201
  2. SINGULAIR [Concomitant]
  3. WARFARIN SODIUM [Concomitant]
  4. THYROID PREPARATIONS [Concomitant]
  5. ALBUTEROL [Concomitant]
     Route: 045

REACTIONS (10)
  - ABNORMAL BEHAVIOUR [None]
  - BALANCE DISORDER [None]
  - CARDIOVERSION [None]
  - CATATONIA [None]
  - COMA [None]
  - DYSPNOEA [None]
  - FLAT AFFECT [None]
  - OCULOGYRATION [None]
  - OXYGEN SATURATION DECREASED [None]
  - PHOBIA [None]
